FAERS Safety Report 24545830 (Version 2)
Quarter: 2024Q4

REPORT INFORMATION
  Report Type: Report from Study
  Country: KR (occurrence: KR)
  Receive Date: 20241024
  Receipt Date: 20241104
  Transmission Date: 20250115
  Serious: Yes (Other)
  Sender: ALEXION PHARMACEUTICALS
  Company Number: KR-AstraZeneca-2024A182838

PATIENT
  Age: 61 Year
  Weight: 50.6 kg

DRUGS (19)
  1. OLAPARIB [Suspect]
     Active Substance: OLAPARIB
     Indication: Ovarian cancer
     Dosage: 300 MILLIGRAM, BID
  2. OLAPARIB [Suspect]
     Active Substance: OLAPARIB
     Dosage: 250 MILLIGRAM, BID
  3. OLAPARIB [Suspect]
     Active Substance: OLAPARIB
     Dosage: 200 MILLIGRAM, BID
  4. OLAPARIB [Suspect]
     Active Substance: OLAPARIB
     Dosage: 200 MILLIGRAM, BID
  5. Feroba you sr [Concomitant]
     Indication: Anaemia
  6. MAGNESIUM HYDROXIDE [Concomitant]
     Active Substance: MAGNESIUM HYDROXIDE
     Indication: Abdominal pain
     Dosage: 500 MG
  7. HERBALS [Concomitant]
     Active Substance: HERBALS
     Indication: Ileus
     Dosage: UNK
  8. TACENOL [Concomitant]
     Indication: Headache
     Dosage: UNK
  9. Duloctin [Concomitant]
     Indication: Anxiety
     Dosage: UNK
  10. FERINJECT [Concomitant]
     Active Substance: FERRIC CARBOXYMALTOSE
     Indication: Anaemia
     Dosage: 10 MILLIGRAM
  11. FERINJECT [Concomitant]
     Active Substance: FERRIC CARBOXYMALTOSE
     Dosage: 10 MILLIGRAM
  12. FERINJECT [Concomitant]
     Active Substance: FERRIC CARBOXYMALTOSE
     Dosage: 10 MILLIGRAM
  13. FERROMAX [Concomitant]
     Indication: Anaemia
     Dosage: UNK
  14. SANCUSO [Concomitant]
     Active Substance: GRANISETRON
     Indication: Vomiting
     Dosage: UNK
  15. METOCLOPRAMIDE HYDROCHLORIDE [Concomitant]
     Active Substance: METOCLOPRAMIDE HYDROCHLORIDE
     Indication: Nausea
  16. RAMOSETRON HYDROCHLORIDE [Concomitant]
     Active Substance: RAMOSETRON HYDROCHLORIDE
     Indication: Prophylaxis
  17. KERASYN [Concomitant]
     Indication: Abdominal pain
     Dosage: UNK
  18. PACETA [Concomitant]
     Indication: Abdominal pain
     Dosage: UNK
  19. TORANZIN [Concomitant]
     Indication: Abdominal pain
     Dosage: UNK

REACTIONS (5)
  - Neutropenia [Recovered/Resolved]
  - Thrombocytopenia [Recovering/Resolving]
  - Neuropathy peripheral [Recovering/Resolving]
  - Leukopenia [Recovering/Resolving]
  - Anaemia [Recovering/Resolving]
